FAERS Safety Report 5794099-8 (Version None)
Quarter: 2008Q2

REPORT INFORMATION
  Report Type: 
  Country: None (occurrence: None)
  Receive Date: 20080627
  Receipt Date: 20080616
  Transmission Date: 20081010
  Serious: Yes (Hospitalization, Other)
  Sender: FDA-Public Use
  Company Number: US-PFIZER INC-2008047306

PATIENT
  Sex: Female

DRUGS (5)
  1. CHANTIX [Suspect]
     Indication: SMOKING CESSATION THERAPY
     Dates: start: 20071214, end: 20080401
  2. OTHER HYPNOTICS AND SEDATIVES [Suspect]
  3. TRILEPTAL [Concomitant]
  4. CELEXA [Concomitant]
  5. KEPPRA [Concomitant]

REACTIONS (18)
  - ABDOMINAL PAIN [None]
  - CERVICAL SPINAL STENOSIS [None]
  - CLAUSTROPHOBIA [None]
  - CONVULSION [None]
  - DECREASED APPETITE [None]
  - DEPRESSED MOOD [None]
  - EPILEPSY [None]
  - FEAR [None]
  - FEELING ABNORMAL [None]
  - GASTROOESOPHAGEAL REFLUX DISEASE [None]
  - HEADACHE [None]
  - INTERVERTEBRAL DISC DISORDER [None]
  - MALAISE [None]
  - NAUSEA [None]
  - SPINAL OSTEOARTHRITIS [None]
  - VOMITING [None]
  - WEIGHT DECREASED [None]
  - WEIGHT INCREASED [None]
